FAERS Safety Report 7372231-2 (Version None)
Quarter: 2011Q1

REPORT INFORMATION
  Report Type: 
  Country: None (occurrence: None)
  Receive Date: 20110324
  Receipt Date: 20110315
  Transmission Date: 20110831
  Serious: Yes (Other)
  Sender: FDA-Public Use
  Company Number: US-NAPPMUNDI-USA-2010-0050890

PATIENT
  Sex: Female

DRUGS (1)
  1. OXYCONTIN [Suspect]
     Indication: FIBROMYALGIA
     Dosage: 160 MG, Q12H
     Dates: start: 20100914, end: 20100921

REACTIONS (29)
  - CANDIDIASIS [None]
  - UNEVALUABLE EVENT [None]
  - OESOPHAGEAL PAIN [None]
  - RASH [None]
  - DYSARTHRIA [None]
  - MALAISE [None]
  - MIGRAINE [None]
  - INSOMNIA [None]
  - ABDOMINAL DISCOMFORT [None]
  - SCAB [None]
  - ERUCTATION [None]
  - CONSTIPATION [None]
  - PRODUCT TASTE ABNORMAL [None]
  - TACHYPHRENIA [None]
  - FOREIGN BODY [None]
  - PYREXIA [None]
  - ABDOMINAL PAIN UPPER [None]
  - PAIN [None]
  - FLUSHING [None]
  - ABDOMINAL DISTENSION [None]
  - CONFUSIONAL STATE [None]
  - INTENTIONAL DRUG MISUSE [None]
  - BASAL CELL CARCINOMA [None]
  - VASCULAR INJURY [None]
  - HEART RATE INCREASED [None]
  - CRYING [None]
  - PRURITUS [None]
  - DYSPNOEA [None]
  - FATIGUE [None]
